FAERS Safety Report 20151931 (Version 1)
Quarter: 2021Q4

REPORT INFORMATION
  Report Type: Spontaneous
  Country: US (occurrence: US)
  Receive Date: 20211206
  Receipt Date: 20211206
  Transmission Date: 20220303
  Serious: No
  Sender: FDA-Public Use
  Company Number: US-GW PHARMA-202111USGW05972

PATIENT

DRUGS (1)
  1. EPIDIOLEX [Suspect]
     Active Substance: CANNABIDIOL
     Indication: Lennox-Gastaut syndrome
     Dosage: 14.22 MILLIGRAM/KILOGRAM/DAY, 300 MILLIGRAM, BID
     Route: 048
     Dates: start: 202107

REACTIONS (2)
  - Gastric dilatation [Unknown]
  - Constipation [Unknown]

NARRATIVE: CASE EVENT DATE: 20210101
